FAERS Safety Report 12248856 (Version 1)
Quarter: 2016Q2

REPORT INFORMATION
  Report Type: Spontaneous
  Country: US (occurrence: US)
  Receive Date: 20160408
  Receipt Date: 20160408
  Transmission Date: 20160815
  Serious: Yes (Other)
  Sender: FDA-Public Use
  Company Number: US-FRI-1000083754

PATIENT
  Age: 79 Year
  Sex: Male
  Weight: 78.9 kg

DRUGS (17)
  1. IRON [Concomitant]
     Active Substance: IRON
  2. PHENYTOIN SODIUM. [Concomitant]
     Active Substance: PHENYTOIN SODIUM
     Dosage: 100MG
     Route: 048
  3. LASIX [Concomitant]
     Active Substance: FUROSEMIDE
     Dosage: 40MG
  4. BIOTIN [Concomitant]
     Active Substance: BIOTIN
  5. CETIRIZINE [Concomitant]
     Active Substance: CETIRIZINE HYDROCHLORIDE
     Indication: HYPERSENSITIVITY
     Dosage: 10MG
  6. CALCIUM [Concomitant]
     Active Substance: CALCIUM
     Indication: PRODUCT USED FOR UNKNOWN INDICATION
     Dosage: 1200MG
     Route: 048
  7. DIVALPROEX [Concomitant]
     Active Substance: DIVALPROEX SODIUM
  8. DULOXETINE. [Concomitant]
     Active Substance: DULOXETINE
     Dosage: 60MG
  9. FISH OIL [Concomitant]
     Active Substance: FISH OIL
     Dosage: 2000
  10. FOLIC ACID. [Concomitant]
     Active Substance: FOLIC ACID
  11. NAMENDA XR [Suspect]
     Active Substance: MEMANTINE HYDROCHLORIDE
     Indication: SEIZURE
     Dosage: 7MG
     Route: 048
  12. MEGESTROL ACETATE. [Concomitant]
     Active Substance: MEGESTROL ACETATE
     Indication: HOT FLUSH
  13. VITAMIN 3 [Concomitant]
  14. ARICEPT [Concomitant]
     Active Substance: DONEPEZIL HYDROCHLORIDE
  15. MELATONIN [Concomitant]
     Active Substance: MELATONIN
  16. OCUVITE [Concomitant]
     Active Substance: VITAMINS
     Indication: EYE DISORDER
  17. ROPINIROLE. [Concomitant]
     Active Substance: ROPINIROLE
     Indication: RESTLESS LEGS SYNDROME
     Dosage: 1MG

REACTIONS (3)
  - Bladder cancer [Not Recovered/Not Resolved]
  - Off label use [Not Recovered/Not Resolved]
  - Cardiac failure congestive [Not Recovered/Not Resolved]

NARRATIVE: CASE EVENT DATE: 201509
